FAERS Safety Report 17221440 (Version 6)
Quarter: 2020Q1

REPORT INFORMATION
  Report Type: Report from Study
  Country: PL (occurrence: PL)
  Receive Date: 20200101
  Receipt Date: 20200319
  Transmission Date: 20200409
  Serious: Yes (Life-Threatening, Hospitalization, Other)
  Sender: FDA-Public Use
  Company Number: PL-AUROBINDO-AUR-APL-2019-108818

PATIENT
  Age: 38 Year
  Sex: Female

DRUGS (17)
  1. CLOPIDOGREL [Suspect]
     Active Substance: CLOPIDOGREL BISULFATE
     Indication: ANTICOAGULANT THERAPY
     Dosage: UNK
     Route: 065
  2. ACETYLSALICYLIC ACID [Interacting]
     Active Substance: ASPIRIN
     Indication: ANTICOAGULANT THERAPY
     Dosage: UNK
     Route: 065
  3. MEROPENEM. [Suspect]
     Active Substance: MEROPENEM
     Indication: PRODUCT USED FOR UNKNOWN INDICATION
     Dosage: 1 GRAM, 3 TIMES A DAY
     Route: 042
  4. GENTAMICIN. [Suspect]
     Active Substance: GENTAMICIN
     Indication: PRODUCT USED FOR UNKNOWN INDICATION
     Dosage: UNK, ONCE A DAY
     Route: 042
  5. CLINDAMYCIN. [Suspect]
     Active Substance: CLINDAMYCIN
     Dosage: 1800 MILLIGRAM, ONCE A DAY
     Route: 042
  6. VANCOMYCIN [Suspect]
     Active Substance: VANCOMYCIN
     Indication: PRODUCT USED FOR UNKNOWN INDICATION
     Dosage: 1 GRAM, 3 TIMES A DAY
     Route: 042
  7. CEFUROXIME. [Suspect]
     Active Substance: CEFUROXIME
     Indication: ABSCESS NECK
     Dosage: UNK
     Route: 065
  8. PROPOFOL. [Suspect]
     Active Substance: PROPOFOL
     Indication: PRODUCT USED FOR UNKNOWN INDICATION
     Dosage: UNK
     Route: 065
  9. MEROPENEM. [Suspect]
     Active Substance: MEROPENEM
     Dosage: 3 GRAM, ONCE A DAY
     Route: 042
  10. OMEPRAZOLE. [Suspect]
     Active Substance: OMEPRAZOLE
     Indication: PRODUCT USED FOR UNKNOWN INDICATION
     Dosage: UNK
     Route: 065
  11. COLISTIMETHATE SODIUM. [Suspect]
     Active Substance: COLISTIMETHATE SODIUM
     Indication: PRODUCT USED FOR UNKNOWN INDICATION
     Dosage: UNK, ONCE A DAY
     Route: 065
  12. VANCOMYCIN [Suspect]
     Active Substance: VANCOMYCIN
     Dosage: 3 GRAM, ONCE A DAY
     Route: 042
  13. FENTANYL. [Suspect]
     Active Substance: FENTANYL
     Indication: PRODUCT USED FOR UNKNOWN INDICATION
     Dosage: UNK
     Route: 065
  14. NYSTATIN. [Concomitant]
     Active Substance: NYSTATIN
     Indication: PRODUCT USED FOR UNKNOWN INDICATION
     Dosage: UNK, ONCE A DAY
     Route: 042
  15. CLOPIDOGREL [Interacting]
     Active Substance: CLOPIDOGREL BISULFATE
     Indication: ANEURYSM REPAIR
  16. FLUCONAZOLE. [Suspect]
     Active Substance: FLUCONAZOLE
     Indication: PRODUCT USED FOR UNKNOWN INDICATION
     Dosage: 200 MILLIGRAM, ONCE A DAY
     Route: 042
  17. CLINDAMYCIN. [Suspect]
     Active Substance: CLINDAMYCIN
     Indication: PRODUCT USED FOR UNKNOWN INDICATION
     Dosage: 600 MILLIGRAM, 3 TIMES A DAY
     Route: 042

REACTIONS (21)
  - Anaemia [Recovered/Resolved]
  - Upper gastrointestinal haemorrhage [Unknown]
  - Septic shock [Recovered/Resolved]
  - Drug ineffective [Unknown]
  - Loss of consciousness [Recovered/Resolved]
  - Gastric ulcer [Recovered/Resolved]
  - Labelled drug-drug interaction medication error [Unknown]
  - Sepsis syndrome [Unknown]
  - Gastric mucosal lesion [Recovered/Resolved]
  - Acute respiratory failure [Recovered/Resolved]
  - Haematemesis [Recovered/Resolved]
  - Drug interaction [Recovered/Resolved]
  - Abscess neck [Recovered/Resolved]
  - Mobility decreased [Recovered/Resolved]
  - Syncope [Recovered/Resolved]
  - Gastrointestinal haemorrhage [Recovered/Resolved]
  - Multiple organ dysfunction syndrome [Recovered/Resolved]
  - Asthenia [Recovered/Resolved]
  - Cellulitis [Unknown]
  - Shock haemorrhagic [Recovered/Resolved]
  - Melaena [Recovered/Resolved]
